FAERS Safety Report 8776629 (Version 1)
Quarter: 2012Q4

REPORT INFORMATION
  Report Type: 
  Country: TR (occurrence: TR)
  Receive Date: 20120910
  Receipt Date: 20120910
  Transmission Date: 20130627
  Serious: Yes (Other)
  Sender: FDA-Public Use
  Company Number: PHHY2009TR071276

PATIENT
  Sex: Male

DRUGS (2)
  1. CO-DIOVAN [Suspect]
     Indication: HYPERTENSION
     Dosage: 1 DF (160 mg vals and 12.5 mg HCTZ), daily
     Dates: start: 200901
  2. AMLODIPINE [Concomitant]
     Dosage: 10 mg, daily
     Dates: start: 200901

REACTIONS (1)
  - Cerebral haemorrhage [Unknown]
